FAERS Safety Report 7713352-1 (Version None)
Quarter: 2011Q3

REPORT INFORMATION
  Report Type: 
  Country: None (occurrence: None)
  Receive Date: 20110826
  Receipt Date: 20110824
  Transmission Date: 20111222
  Serious: Yes (Hospitalization)
  Sender: FDA-Public Use
  Company Number: JP-BAYER-2011-077437

PATIENT
  Age: 66 Year
  Sex: Female

DRUGS (1)
  1. EOB PRIMOVIST [Suspect]
     Indication: NUCLEAR MAGNETIC RESONANCE IMAGING
     Dosage: 5 ML, ONCE
     Route: 042
     Dates: start: 20110824, end: 20110824

REACTIONS (2)
  - MEMORY IMPAIRMENT [None]
  - AMNESIA [None]
